FAERS Safety Report 7224366-2 (Version None)
Quarter: 2011Q1

REPORT INFORMATION
  Report Type: 
  Country: None (occurrence: None)
  Receive Date: 20110103
  Receipt Date: 20101216
  Transmission Date: 20110831
  Serious: Yes (Other)
  Sender: FDA-Public Use
  Company Number: 2010P1002947

PATIENT
  Age: 60 Year
  Sex: Female
  Weight: 86.1834 kg

DRUGS (5)
  1. CYMBALTA [Concomitant]
  2. FENTANYL-25 [Suspect]
     Indication: PAIN
     Dosage: 25 MCG/HR; Q3D; TDER
     Route: 062
     Dates: start: 20100501, end: 20101112
  3. HYDROCODONE [Concomitant]
  4. NEURONTIN [Concomitant]
  5. VALIUM [Concomitant]

REACTIONS (9)
  - HEADACHE [None]
  - BLOOD PRESSURE SYSTOLIC INCREASED [None]
  - DRUG INEFFECTIVE [None]
  - NERVOUSNESS [None]
  - ANKLE FRACTURE [None]
  - HYPOAESTHESIA [None]
  - ONYCHOPHAGIA [None]
  - SELF INJURIOUS BEHAVIOUR [None]
  - OCULAR RETROBULBAR HAEMORRHAGE [None]
